FAERS Safety Report 10563412 (Version 2)
Quarter: 2014Q4

REPORT INFORMATION
  Report Type: Spontaneous
  Country: FR (occurrence: FR)
  Receive Date: 20141104
  Receipt Date: 20141104
  Transmission Date: 20150529
  Serious: Yes (Death, Hospitalization)
  Sender: FDA-Public Use
  Company Number: FR-SA-200211594FR

PATIENT
  Age: 83 Year
  Sex: Female

DRUGS (18)
  1. TETAGRIP [Concomitant]
     Indication: ANTIVIRAL PROPHYLAXIS
     Dosage: DOSE UNIT: 1 U
     Dates: start: 20011023, end: 20011023
  2. TOPLEXIL [Concomitant]
     Active Substance: UNSPECIFIED INGREDIENT
  3. NETUX [Concomitant]
     Dosage: DOSE UNIT: 1 U
     Route: 048
  4. LOPERAMIDE HYDROCHLORIDE. [Concomitant]
     Active Substance: LOPERAMIDE HYDROCHLORIDE
     Route: 048
  5. ATROVENT [Concomitant]
     Active Substance: IPRATROPIUM BROMIDE
  6. PREVISCAN [Concomitant]
     Active Substance: FLUINDIONE
     Indication: PHLEBITIS
     Dosage: DOSE UNIT: 20 MG
     Route: 048
     Dates: start: 19970101
  7. CHLORHEXIDINE GLUCONATE/CHLOROCRESOL/HEXAMIDINE ISETIONATE [Concomitant]
  8. ELUDRIL [Concomitant]
     Active Substance: CHLORHEXIDINE GLUCONATE\CHLOROBUTANOL
  9. ORACEFAL [Suspect]
     Active Substance: CEFADROXIL
     Route: 048
     Dates: start: 20011201
  10. DUSPATALIN ^FERROSAN^ [Concomitant]
  11. OXYBUTYNIN [Concomitant]
     Active Substance: OXYBUTYNIN
     Dosage: DOSE UNIT: 5 MG
     Route: 048
  12. VOLTARENE [Suspect]
     Active Substance: DICLOFENAC SODIUM
     Route: 065
  13. CHLORAMINOPHENE ^TECHNI-PHARMA^ [Suspect]
     Active Substance: CHLORAMBUCIL
     Indication: B-CELL LYMPHOMA
     Dosage: DOSE UNIT: 2 MG
     Route: 048
     Dates: start: 19990126
  14. ERCEFURYL [Concomitant]
  15. LASILIX FAIBLE [Suspect]
     Active Substance: FUROSEMIDE
     Indication: ESSENTIAL HYPERTENSION
     Dosage: DOSE UNIT: 1 U
     Route: 048
     Dates: start: 19980910, end: 20020125
  16. TOBRAMYCIN. [Concomitant]
     Active Substance: TOBRAMYCIN
  17. PREVISCAN [Concomitant]
     Active Substance: FLUINDIONE
     Indication: DEEP VEIN THROMBOSIS
     Dosage: DOSE UNIT: 20 MG
     Route: 048
     Dates: start: 19970101
  18. CYCLO 3 /POR/ [Concomitant]
     Route: 023

REACTIONS (2)
  - Lichenoid keratosis [Unknown]
  - Death [Fatal]

NARRATIVE: CASE EVENT DATE: 2002
